FAERS Safety Report 20960331 (Version 1)
Quarter: 2022Q2

REPORT INFORMATION
  Report Type: Report from Study
  Country: US (occurrence: US)
  Receive Date: 20220615
  Receipt Date: 20220615
  Transmission Date: 20220721
  Serious: Yes (Hospitalization)
  Sender: FDA-Public Use
  Company Number: US-GILEAD-2022-0585021

PATIENT
  Age: 12 Year
  Sex: Male

DRUGS (4)
  1. AZTREONAM LYSINE [Suspect]
     Active Substance: AZTREONAM LYSINE
     Indication: Lung disorder
     Dosage: 75 MG, TID, 28 DAYS ON, 28 DAYS OFF
     Route: 055
  2. IBUPROFEN [Concomitant]
     Active Substance: IBUPROFEN
  3. CLARITIN [Concomitant]
     Active Substance: LORATADINE
  4. COLISTIN SULFATE [Concomitant]
     Active Substance: COLISTIN SULFATE
     Dosage: UNK

REACTIONS (1)
  - Respiratory syncytial virus infection [Unknown]

NARRATIVE: CASE EVENT DATE: 20220401
